FAERS Safety Report 18739165 (Version 1)
Quarter: 2021Q1

REPORT INFORMATION
  Report Type: Spontaneous
  Country: US (occurrence: US)
  Receive Date: 20210114
  Receipt Date: 20210114
  Transmission Date: 20210419
  Serious: No
  Sender: FDA-Public Use
  Company Number: US-ALLERGAN-2046154US

PATIENT
  Age: 34 Year
  Sex: Female

DRUGS (2)
  1. UBRELVY [Suspect]
     Active Substance: UBROGEPANT
     Indication: MIGRAINE WITHOUT AURA
     Dosage: 1 DF, PRN
     Dates: start: 202006
  2. ZOMIG [Concomitant]
     Active Substance: ZOLMITRIPTAN
     Indication: MIGRAINE WITHOUT AURA
     Dosage: UNK, Q MONTH
     Route: 058

REACTIONS (1)
  - Drug ineffective [Unknown]
